FAERS Safety Report 24358496 (Version 1)
Quarter: 2024Q3

REPORT INFORMATION
  Report Type: Spontaneous
  Country: US (occurrence: None)
  Receive Date: 20240920
  Receipt Date: 20240920
  Transmission Date: 20241017
  Serious: Yes (Hospitalization, Other)
  Sender: Public
  Company Number: None

PATIENT
  Age: 38 Year
  Sex: Female
  Weight: 81.65 kg

DRUGS (3)
  1. ZEPBOUND [Suspect]
     Active Substance: TIRZEPATIDE
     Indication: Obesity
     Dosage: 15 MG WEEKLY SUBCUTANEOUS
     Route: 058
     Dates: start: 20231212, end: 20240915
  2. TOPIRAMATE [Concomitant]
     Active Substance: TOPIRAMATE
  3. METOPROLOL SUCCINATE [Concomitant]

REACTIONS (6)
  - Rhabdomyolysis [None]
  - Fatigue [None]
  - Nausea [None]
  - Hypophagia [None]
  - Vomiting [None]
  - Pain in extremity [None]

NARRATIVE: CASE EVENT DATE: 20240917
